FAERS Safety Report 9202005 (Version 1)
Quarter: 2013Q2

REPORT INFORMATION
  Report Type: Spontaneous
  Country: US (occurrence: US)
  Receive Date: 20130401
  Receipt Date: 20130401
  Transmission Date: 20140414
  Serious: Yes (Other)
  Sender: FDA-Public Use
  Company Number: US-BAYER-2013-037936

PATIENT
  Age: 32 Year
  Sex: Female
  Weight: 136 kg

DRUGS (18)
  1. YAZ [Suspect]
     Indication: CONTRACEPTION
  2. YAZ [Suspect]
     Indication: ENDOMETRIOSIS
  3. YASMIN [Suspect]
  4. GIANVI [Suspect]
  5. ACIPHEX [Concomitant]
     Dosage: 20 MG, UNK
  6. LEVOXYL [Concomitant]
  7. CELEXA [Concomitant]
     Dosage: UNK
  8. LEVAQUIN [Concomitant]
     Dosage: UNK
  9. HYCODAN [HYDROCODONE BITARTRATE] [Concomitant]
     Dosage: UNK
  10. HYDROCODONE W/ACETAMINOPHEN [Concomitant]
     Dosage: 7.5/500
  11. HYDROCODONE/ACETAMINOPHEN [Concomitant]
     Dosage: 5/500
  12. PROPOXYPHENE NAPSYLATE W/ACETAMINOPHENE [Concomitant]
     Dosage: 100 / 650
  13. OXYCODONE/ACETAMINOPHN [Concomitant]
     Dosage: 7.5/500
  14. CEPHALEXIN [Concomitant]
     Dosage: 500 MG, UNK
  15. OMNICEF [Concomitant]
     Indication: SINUSITIS
  16. CORTISONE [CORTISONE ACETATE] [Concomitant]
     Indication: FASCIITIS
  17. ALCOHOL [ETHANOL] [Concomitant]
     Indication: FASCIITIS
  18. AUGMENTIN [Concomitant]

REACTIONS (1)
  - Deep vein thrombosis [None]
